FAERS Safety Report 24138734 (Version 2)
Quarter: 2024Q4

REPORT INFORMATION
  Report Type: Report from Study
  Country: IT (occurrence: IT)
  Receive Date: 20240725
  Receipt Date: 20241002
  Transmission Date: 20250114
  Serious: Yes (Death, Hospitalization)
  Sender: UCB
  Company Number: IT-UCBSA-2024036052

PATIENT
  Sex: Female

DRUGS (1)
  1. NEUPRO [Suspect]
     Active Substance: ROTIGOTINE
     Indication: Parkinson^s disease
     Dosage: 10 MILLIGRAM (8 MG+2 MG PATCH), ONCE DAILY (QD)
     Route: 062

REACTIONS (2)
  - Dysphagia [Unknown]
  - Death [Fatal]

NARRATIVE: CASE EVENT DATE: 20240101
